FAERS Safety Report 5256451-9 (Version None)
Quarter: 2007Q1

REPORT INFORMATION
  Report Type: 
  Country: None (occurrence: None)
  Receive Date: 20070306
  Receipt Date: 20070226
  Transmission Date: 20070707
  Serious: Yes (Other)
  Sender: FDA-Public Use
  Company Number: DE-ELI_LILLY_AND_COMPANY-DE200702005571

PATIENT
  Sex: Male

DRUGS (7)
  1. ZYPREXA [Suspect]
     Indication: SCHIZOPHRENIA
     Dosage: 5 MG, DAILY (1/D)
     Route: 048
     Dates: start: 20070216, end: 20070226
  2. ZYPREXA [Suspect]
     Dosage: 15 MG, DAILY (1/D)
     Route: 048
  3. DIAZEPAM [Concomitant]
  4. FLUPHENAZINE [Concomitant]
     Dosage: 100 MG, UNK
  5. FLUPHENAZINE [Concomitant]
     Dosage: 50 MG, UNK
  6. AMISULPRIDE [Concomitant]
     Dosage: 400 MG, EACH MORNING
     Route: 048
     Dates: end: 20070215
  7. TRIMIPRAMINE MALEATE [Concomitant]
     Dosage: 100 MG, EACH EVENING
     Route: 048
     Dates: end: 20070215

REACTIONS (2)
  - PSORIASIS [None]
  - TARDIVE DYSKINESIA [None]
